FAERS Safety Report 8260080-2 (Version None)
Quarter: 2012Q2

REPORT INFORMATION
  Report Type: 
  Country: None (occurrence: None)
  Receive Date: 20120404
  Receipt Date: 20120328
  Transmission Date: 20120825
  Serious: Yes (Hospitalization, Other)
  Sender: FDA-Public Use
  Company Number: US-JNJFOC-20120302090

PATIENT
  Sex: Male

DRUGS (17)
  1. LISINOPRIL [Concomitant]
  2. LUTEIN [Concomitant]
     Route: 048
  3. NYSTATIN [Concomitant]
  4. XARELTO [Suspect]
     Indication: KNEE ARTHROPLASTY
     Route: 048
     Dates: start: 20120207
  5. NIFEREX (IRON POLYSACCHARIDE) [Concomitant]
     Route: 048
  6. METFORMIN HCL [Concomitant]
     Route: 048
  7. XENADERM [Concomitant]
  8. OXYCODONE HCL [Concomitant]
     Indication: BREAKTHROUGH PAIN
     Route: 048
  9. XARELTO [Suspect]
     Indication: THROMBOSIS PROPHYLAXIS
     Route: 048
     Dates: start: 20120207
  10. LASIX [Concomitant]
     Route: 048
  11. FERROUS SULFATE TAB [Concomitant]
     Route: 048
  12. ASCORBIC ACID [Concomitant]
     Route: 048
  13. FISH OIL [Concomitant]
     Route: 048
  14. FLOMAX [Concomitant]
     Route: 048
  15. MULTI-VITAMINS [Concomitant]
  16. OXYCONTIN [Concomitant]
     Route: 048
  17. NYSTATIN SWISH AND SWALLOW [Concomitant]

REACTIONS (4)
  - WOUND DEHISCENCE [None]
  - HYPOVOLAEMIC SHOCK [None]
  - GASTRIC ULCER [None]
  - GASTRIC ULCER HAEMORRHAGE [None]
